FAERS Safety Report 17192311 (Version 6)
Quarter: 2020Q2

REPORT INFORMATION
  Report Type: Spontaneous
  Country: JP (occurrence: JP)
  Receive Date: 20191223
  Receipt Date: 20200402
  Transmission Date: 20200713
  Serious: Yes (Hospitalization, Other)
  Sender: FDA-Public Use
  Company Number: JP-AMGEN-JPNSP2019212219

PATIENT
  Age: 89 Year
  Sex: Male

DRUGS (5)
  1. EVENITY [Suspect]
     Active Substance: ROMOSOZUMAB-AQQG
     Indication: OSTEOPOROSIS
     Dosage: 210 MILLIGRAM, QMO
     Route: 058
     Dates: start: 20190729, end: 20191125
  2. REBAMIPIDE [Concomitant]
     Active Substance: REBAMIPIDE
     Indication: ULCER
     Dosage: 100 MILLIGRAM, TID (THRICE DIALY EACH MEAL
     Dates: start: 20191220, end: 20200115
  3. TRAZENTA [Concomitant]
     Active Substance: LINAGLIPTIN
     Indication: DIABETES MELLITUS
     Dosage: 0.5 MILLIGRAM, QD (ONCE DAILY MORNING)
  4. ARICEPT [Suspect]
     Active Substance: DONEPEZIL HYDROCHLORIDE
     Indication: DEMENTIA
     Dosage: 10 MILLIGRAM, QD (ONCE DAILY MORNING)
     Route: 065
  5. RISPERIDONE. [Suspect]
     Active Substance: RISPERIDONE
     Indication: RESTLESSNESS
     Dosage: 0.5 MILLIGRAM, QD (ONCE DAILY IN EVENING
     Route: 065
     Dates: start: 20191223, end: 20200115

REACTIONS (5)
  - Fall [Recovering/Resolving]
  - Restlessness [Recovering/Resolving]
  - Femur fracture [Recovering/Resolving]
  - Dizziness [Recovered/Resolved]
  - Procedural pain [Recovering/Resolving]

NARRATIVE: CASE EVENT DATE: 20191217
